FAERS Safety Report 10149378 (Version 1)
Quarter: 2014Q2

REPORT INFORMATION
  Report Type: Spontaneous
  Country: US (occurrence: None)
  Receive Date: 20140430
  Receipt Date: 20140430
  Transmission Date: 20141212
  Serious: Yes (Hospitalization)
  Sender: FDA-Public Use
  Company Number: None

PATIENT
  Age: 70 Year
  Sex: Male

DRUGS (8)
  1. HEPARIN [Suspect]
     Indication: THROMBOSIS
     Route: 042
     Dates: start: 20131124, end: 20131129
  2. AMIODARONE [Concomitant]
  3. CARVEDILOL [Concomitant]
  4. FERROUS SULFATE [Concomitant]
  5. LIDOCAINE [Concomitant]
  6. LORAZEPAM [Concomitant]
  7. MAGNESIUM OXIDE [Concomitant]
  8. POTASSIUM CHLORIDE [Concomitant]

REACTIONS (2)
  - Haemoglobin decreased [None]
  - Retroperitoneal haemorrhage [None]
